FAERS Safety Report 20337002 (Version 1)
Quarter: 2022Q1

REPORT INFORMATION
  Report Type: Spontaneous
  Country: US (occurrence: US)
  Receive Date: 20220114
  Receipt Date: 20220114
  Transmission Date: 20220423
  Serious: No
  Sender: FDA-Public Use
  Company Number: US-PFIZER INC-2021582747

PATIENT
  Age: 58 Year
  Sex: Female
  Weight: 84.37 kg

DRUGS (3)
  1. PREMARIN [Suspect]
     Active Substance: ESTROGENS, CONJUGATED
     Dosage: 0.625 UNK
     Dates: start: 20130301
  2. DICLOFENAC [Concomitant]
     Active Substance: DICLOFENAC
     Indication: Arthralgia
     Dosage: 75 UNK
  3. METOPROLOL [Concomitant]
     Active Substance: METOPROLOL
     Indication: Hypertension
     Dosage: 50 MG

REACTIONS (4)
  - Fatigue [Unknown]
  - Insomnia [Unknown]
  - Hyperhidrosis [Unknown]
  - Mental disorder [Unknown]
